FAERS Safety Report 21885825 (Version 1)
Quarter: 2023Q1

REPORT INFORMATION
  Report Type: Spontaneous
  Country: FR (occurrence: FR)
  Receive Date: 20230119
  Receipt Date: 20230119
  Transmission Date: 20230418
  Serious: Yes (Death, Other)
  Sender: FDA-Public Use
  Company Number: FR-BAXTER-2022BAX026254

PATIENT
  Age: 90 Year
  Sex: Male

DRUGS (2)
  1. BORTEZOMIB [Suspect]
     Active Substance: BORTEZOMIB
     Indication: Product used for unknown indication
     Dosage: 2.1 MG(2.1 MG/DOSE (TREATMENT LINE NUMBER 1)
     Route: 065
     Dates: end: 20191227
  2. CYCLOPHOSPHAMIDE [Suspect]
     Active Substance: CYCLOPHOSPHAMIDE
     Indication: Product used for unknown indication
     Dosage: (TREATMENT LINE NUMBER 1, DURATION: 2.4 MONTHS)
     Route: 065
     Dates: end: 20191227

REACTIONS (1)
  - Death [Fatal]

NARRATIVE: CASE EVENT DATE: 20200104
